FAERS Safety Report 6853531-9 (Version None)
Quarter: 2010Q3

REPORT INFORMATION
  Report Type: 
  Country: None (occurrence: None)
  Receive Date: 20100717
  Receipt Date: 20071210
  Transmission Date: 20110219
  Serious: No
  Sender: FDA-Public Use
  Company Number: US-PFIZER INC-2007105710

PATIENT
  Sex: Male
  Weight: 102.7 kg

DRUGS (4)
  1. CHANTIX [Suspect]
     Indication: SMOKING CESSATION THERAPY
     Dates: start: 20071208
  2. EFFEXOR [Concomitant]
     Indication: DEPRESSION
  3. PROVIGIL [Concomitant]
     Indication: SLEEP APNOEA SYNDROME
  4. DEPO-TESTOSTERONE [Concomitant]
     Indication: ANDROGEN DEFICIENCY

REACTIONS (2)
  - DEPRESSED MOOD [None]
  - FEELING ABNORMAL [None]
